FAERS Safety Report 9020332 (Version 1)
Quarter: 2013Q1

REPORT INFORMATION
  Report Type: Spontaneous
  Country: None (occurrence: US)
  Receive Date: 20130119
  Receipt Date: 20130119
  Transmission Date: 20140127
  Serious: No
  Sender: FDA-Public Use
  Company Number: US-ALLERGAN-1208809US

PATIENT
  Age: 28 Year
  Sex: Male

DRUGS (5)
  1. BOTOX COSMETIC [Suspect]
     Indication: SKIN WRINKLING
     Dosage: 40 UNITS, SINGLE
     Route: 030
     Dates: start: 20120502, end: 20120502
  2. BOTOX COSMETIC [Suspect]
     Indication: SKIN WRINKLING
  3. LANTUS [Concomitant]
     Indication: DIABETES MELLITUS
  4. APHARDI INSULIN [Concomitant]
     Indication: DIABETES MELLITUS
  5. SYNTHROID [Concomitant]
     Indication: THYROID DISORDER

REACTIONS (2)
  - Off label use [Unknown]
  - Drug ineffective [Unknown]
